FAERS Safety Report 6783440-5 (Version None)
Quarter: 2010Q2

REPORT INFORMATION
  Report Type: 
  Country: None (occurrence: None)
  Receive Date: 20100622
  Receipt Date: 20100611
  Transmission Date: 20101027
  Serious: Yes (Other)
  Sender: FDA-Public Use
  Company Number: US-SANOFI-AVENTIS-2010SA023082

PATIENT
  Age: 73 Year
  Sex: Female

DRUGS (3)
  1. LANTUS [Suspect]
     Indication: TYPE 2 DIABETES MELLITUS
     Dosage: DOSE:50 UNIT(S)
     Route: 058
     Dates: start: 20070401
  2. LANTUS [Suspect]
     Route: 058
     Dates: start: 20070101
  3. OPTICLICK [Suspect]
     Dates: start: 20070401, end: 20100420

REACTIONS (1)
  - CATHETERISATION CARDIAC [None]
